FAERS Safety Report 8094766 (Version 2)
Quarter: 2013Q4

REPORT INFORMATION
  Report Type: Report from Study
  Country: AU (occurrence: AU)
  Receive Date: 20110817
  Receipt Date: 20131122
  Transmission Date: 20140711
  Serious: Yes (Other)
  Sender: FDA-Public Use
  Company Number: PHHY2011AU67196

PATIENT
  Sex: Female

DRUGS (3)
  1. SANDOSTATIN LAR [Suspect]
     Indication: ACROMEGALY
     Dosage: 30 MG
     Route: 030
  2. PREDNISOLON [Concomitant]
     Dosage: UNK UKN, UNK
  3. DOSTINEX [Concomitant]
     Dosage: UNK UKN, UNK
     Dates: start: 201105

REACTIONS (2)
  - Depression [Unknown]
  - Pain in extremity [Unknown]
